FAERS Safety Report 17157661 (Version 1)
Quarter: 2019Q4

REPORT INFORMATION
  Report Type: Spontaneous
  Country: US (occurrence: US)
  Receive Date: 20191213
  Receipt Date: 20191213
  Transmission Date: 20200122
  Serious: Yes (Death)
  Sender: FDA-Public Use
  Company Number: None

PATIENT
  Age: 42 Year
  Sex: Female

DRUGS (2)
  1. VIVITROL [Suspect]
     Active Substance: NALTREXONE
     Indication: ALCOHOLISM
     Dosage: ?          OTHER FREQUENCY:1: 4 WKS OR MNTLY;?
     Route: 030
     Dates: start: 20190515, end: 20190928
  2. DOXYCYCL HYC TAB 100MG [Concomitant]
     Dates: start: 20160928, end: 20190928

REACTIONS (1)
  - Death [None]

NARRATIVE: CASE EVENT DATE: 20190928
